FAERS Safety Report 12962083 (Version 3)
Quarter: 2017Q1

REPORT INFORMATION
  Report Type: Spontaneous
  Country: US (occurrence: US)
  Receive Date: 20161121
  Receipt Date: 20170109
  Transmission Date: 20170428
  Serious: No
  Sender: FDA-Public Use
  Company Number: US-INCYTE CORPORATION-2016IN007193

PATIENT
  Age: 84 Year
  Sex: Female

DRUGS (1)
  1. JAKAFI [Suspect]
     Active Substance: RUXOLITINIB
     Indication: MYELOFIBROSIS
     Dosage: 10 MG, (TWO 5 MG TABLETS), TWICE DAILY
     Route: 048
     Dates: start: 20161026

REACTIONS (5)
  - Haemoglobin decreased [Unknown]
  - Therapeutic response unexpected [Recovering/Resolving]
  - Back pain [Unknown]
  - Arthralgia [Unknown]
  - Asthenia [Unknown]

NARRATIVE: CASE EVENT DATE: 2016
